FAERS Safety Report 5585327-2 (Version None)
Quarter: 2007Q4

REPORT INFORMATION
  Report Type: 
  Country: None (occurrence: None)
  Receive Date: 20071130
  Receipt Date: 20070619
  Transmission Date: 20080405
  Serious: Yes (Other)
  Sender: FDA-Public Use
  Company Number: WAES 0706USA03238

PATIENT
  Age: 75 Year
  Sex: Female

DRUGS (9)
  1. FOSAMAX [Suspect]
     Indication: OSTEOPOROSIS
     Dosage: PO
     Route: 048
     Dates: start: 19990101
  2. ATIVAN [Concomitant]
  3. EVISTA [Concomitant]
  4. LANOXIN [Concomitant]
  5. PROTONIX [Concomitant]
  6. SYNTHROID [Concomitant]
  7. TENORMIN [Concomitant]
  8. DICYCLOMINE HYDROCHLORIDE [Concomitant]
  9. LISINOPRIL [Concomitant]

REACTIONS (1)
  - OSTEONECROSIS [None]
